FAERS Safety Report 7445995-7 (Version None)
Quarter: 2011Q2

REPORT INFORMATION
  Report Type: 
  Country: None (occurrence: None)
  Receive Date: 20110429
  Receipt Date: 20110420
  Transmission Date: 20111010
  Serious: Yes (Other)
  Sender: FDA-Public Use
  Company Number: AU-ASTRAZENECA-2011SE23605

PATIENT
  Age: 57 Year
  Sex: Female

DRUGS (2)
  1. ARIMIDEX [Suspect]
     Route: 048
  2. ENTECAVIR [Concomitant]
     Indication: HEPATITIS B

REACTIONS (1)
  - PANCREATITIS [None]
